FAERS Safety Report 7860707-0 (Version None)
Quarter: 2011Q4

REPORT INFORMATION
  Report Type: 
  Country: None (occurrence: None)
  Receive Date: 20111027
  Receipt Date: 20111025
  Transmission Date: 20120403
  Serious: Yes (Other)
  Sender: FDA-Public Use
  Company Number: US-VERTEX PHARMACEUTICALS INC.-AE-2011-002403

PATIENT
  Sex: Female
  Weight: 60.836 kg

DRUGS (15)
  1. INCIVEK [Suspect]
     Indication: HEPATITIS C
     Route: 048
     Dates: start: 20110916
  2. RIBAVIRIN [Concomitant]
     Indication: HEPATITIS C
     Route: 048
     Dates: start: 20110916
  3. TYLENOL-500 [Concomitant]
  4. BENADRYL [Concomitant]
  5. TRAZODONE HYDROCHLORIDE [Concomitant]
  6. MULTI-VITAMIN [Concomitant]
  7. SOMA [Concomitant]
  8. CHOLECALCIFEROL LIQUID [Concomitant]
  9. PEGASYS [Concomitant]
     Route: 058
  10. LISINOPRIL [Concomitant]
  11. FISH OIL [Concomitant]
  12. ASCORBIC ACID [Concomitant]
  13. PEGASYS [Concomitant]
     Indication: HEPATITIS C
     Route: 058
     Dates: start: 20110916
  14. PHENERGAN HCL [Concomitant]
  15. SEROQUEL [Concomitant]

REACTIONS (11)
  - SOMNOLENCE [None]
  - DYSGRAPHIA [None]
  - RASH [None]
  - DYSARTHRIA [None]
  - GAIT DISTURBANCE [None]
  - TREMOR [None]
  - COUGH [None]
  - FATIGUE [None]
  - HAEMORRHOIDS [None]
  - EYE PRURITUS [None]
  - MENTAL IMPAIRMENT [None]
